FAERS Safety Report 5954206-0 (Version None)
Quarter: 2008Q4

REPORT INFORMATION
  Report Type: 
  Country: None (occurrence: None)
  Receive Date: 20081117
  Receipt Date: 20081111
  Transmission Date: 20090506
  Serious: Yes (Other)
  Sender: FDA-Public Use
  Company Number: GB-JNJFOC-20081102729

PATIENT
  Sex: Female
  Weight: 61 kg

DRUGS (7)
  1. REMICADE [Suspect]
     Indication: RHEUMATOID ARTHRITIS
     Route: 042
  2. FOLIC ACID [Concomitant]
  3. HYDROXYCHLOROQUINE SULFATE [Concomitant]
  4. MAXEPA [Concomitant]
  5. METHOTREXATE [Concomitant]
  6. PRENISOLONE [Concomitant]
  7. VOLTAREN [Concomitant]

REACTIONS (1)
  - CARCINOMA IN SITU OF SKIN [None]
